FAERS Safety Report 4278568-8 (Version None)
Quarter: 2004Q1

REPORT INFORMATION
  Report Type: 
  Country: None (occurrence: None)
  Receive Date: 20040122
  Receipt Date: 20040108
  Transmission Date: 20041129
  Serious: Yes (Death, Hospitalization)
  Sender: FDA-Public Use
  Company Number: F01200400043

PATIENT
  Age: 75 Year
  Sex: Male

DRUGS (3)
  1. OXALIPLATIN - SOLUTION - 85 MG/M2 [Suspect]
     Indication: COLORECTAL CANCER
     Dosage: 85 MG/M2 Q2W, INTRAVENOUS NOS
     Route: 042
     Dates: start: 20031124, end: 20031124
  2. FLUOROURACIL - SOLUTION 600 MG/M2 [Suspect]
     Dosage: 600 MG/M2 Q2W, INTRAVENOUS NOS
     Route: 042
     Dates: start: 20031124, end: 20031124
  3. LEUCOVORIN CALCIUM [Suspect]
     Dosage: 200 MG/M2, INTRAVENOUS NOS
     Route: 042
     Dates: start: 20031124, end: 20031124

REACTIONS (5)
  - DYSPNOEA [None]
  - INFECTION [None]
  - PNEUMONIA [None]
  - PYREXIA [None]
  - TACHYCARDIA [None]
